FAERS Safety Report 19321586 (Version 1)
Quarter: 2021Q2

REPORT INFORMATION
  Report Type: Spontaneous
  Country: US (occurrence: US)
  Receive Date: 20210528
  Receipt Date: 20210528
  Transmission Date: 20210717
  Serious: No
  Sender: FDA-Public Use
  Company Number: None

PATIENT
  Sex: Female

DRUGS (3)
  1. PROLENSA [Suspect]
     Active Substance: BROMFENAC SODIUM
     Indication: EYE OPERATION
     Dates: start: 20210104, end: 20210528
  2. BESIVANCE [Suspect]
     Active Substance: BESIFLOXACIN
     Indication: EYE OPERATION
     Dates: start: 20210104, end: 20210528
  3. DUREZOL [Suspect]
     Active Substance: DIFLUPREDNATE
     Dates: start: 20210104, end: 20210528

REACTIONS (2)
  - Periorbital swelling [None]
  - Dark circles under eyes [None]

NARRATIVE: CASE EVENT DATE: 20210104
